FAERS Safety Report 23163088 (Version 1)
Quarter: 2023Q4

REPORT INFORMATION
  Report Type: Spontaneous
  Country: FR (occurrence: FR)
  Receive Date: 20231109
  Receipt Date: 20231109
  Transmission Date: 20240110
  Serious: Yes (Hospitalization)
  Sender: FDA-Public Use
  Company Number: FR-AFSSAPS-TO2023001843

PATIENT
  Age: 71 Year
  Sex: Female

DRUGS (5)
  1. LEVOFLOXACIN [Suspect]
     Active Substance: LEVOFLOXACIN
     Indication: Osteitis
     Dosage: 750 MILLIGRAM, ONCE A DAY/500 MG : 1.5 CP/J
     Route: 048
     Dates: start: 20230708
  2. CLOXACILLIN [Suspect]
     Active Substance: CLOXACILLIN
     Indication: Osteitis
     Dosage: 12 GRAM, ONCE A DAY
     Route: 042
     Dates: start: 20230719
  3. GENTAMICIN [Suspect]
     Active Substance: GENTAMICIN
     Indication: Osteitis
     Dosage: 336 MILLIGRAM, ONCE A DAY
     Route: 042
     Dates: start: 20230623
  4. RIFAMPIN [Suspect]
     Active Substance: RIFAMPIN
     Indication: Osteitis
     Dosage: 900 MILLIGRAM, ONCE A DAY/600 MG MATIN- 0- 300 MG SOIR
     Route: 048
     Dates: start: 20230708
  5. RIFAMPIN [Suspect]
     Active Substance: RIFAMPIN
     Dosage: 600 MILLIGRAM, ONCE A DAY/300 MG MATIN- 0- 300 MG SOIR
     Route: 048
     Dates: start: 20230713

REACTIONS (1)
  - Labyrinthitis [Not Recovered/Not Resolved]

NARRATIVE: CASE EVENT DATE: 20230730
